FAERS Safety Report 7132534-3 (Version None)
Quarter: 2010Q4

REPORT INFORMATION
  Report Type: 
  Country: None (occurrence: None)
  Receive Date: 20101130
  Receipt Date: 20101130
  Transmission Date: 20110411
  Serious: Yes (Death, Hospitalization)
  Sender: FDA-Public Use
  Company Number: None

PATIENT
  Sex: Male
  Weight: 80 kg

DRUGS (2)
  1. CARBOPLATIN [Suspect]
     Dosage: 484 MG
     Dates: end: 20101115
  2. ETOPOSIDE [Suspect]
     Dosage: 564 MG
     Dates: end: 20101118

REACTIONS (1)
  - UNRESPONSIVE TO STIMULI [None]
